FAERS Safety Report 25189941 (Version 2)
Quarter: 2025Q3

REPORT INFORMATION
  Report Type: Spontaneous
  Country: US (occurrence: US)
  Receive Date: 20250411
  Receipt Date: 20250822
  Transmission Date: 20251020
  Serious: No
  Sender: BRISTOL-MYERS SQUIBB COMPANY
  Company Number: US-BRISTOL-MYERS SQUIBB COMPANY-2025-054499

PATIENT
  Age: 72 Year
  Sex: Female

DRUGS (4)
  1. KRAZATI [Suspect]
     Active Substance: ADAGRASIB
     Indication: Product used for unknown indication
     Route: 048
  2. KRAZATI [Suspect]
     Active Substance: ADAGRASIB
     Route: 048
  3. KRAZATI [Suspect]
     Active Substance: ADAGRASIB
     Route: 048
  4. KRAZATI [Suspect]
     Active Substance: ADAGRASIB
     Route: 048

REACTIONS (2)
  - Adverse event [Unknown]
  - Off label use [Unknown]
